FAERS Safety Report 12543117 (Version 2)
Quarter: 2016Q3

REPORT INFORMATION
  Report Type: Spontaneous
  Country: US (occurrence: US)
  Receive Date: 20160711
  Receipt Date: 20160803
  Transmission Date: 20161109
  Serious: No
  Sender: FDA-Public Use
  Company Number: US-009507513-1606USA010188

PATIENT
  Age: 23 Year
  Sex: Female

DRUGS (1)
  1. NEXPLANON [Suspect]
     Active Substance: ETONOGESTREL
     Dosage: UNK
     Route: 059
     Dates: start: 20150511

REACTIONS (4)
  - Tinnitus [Unknown]
  - Hypoaesthesia [Unknown]
  - Tendonitis [Unknown]
  - Pruritus [Unknown]

NARRATIVE: CASE EVENT DATE: 201602
